FAERS Safety Report 26129556 (Version 1)
Quarter: 2025Q4

REPORT INFORMATION
  Report Type: Spontaneous
  Country: EU (occurrence: EU)
  Receive Date: 20251208
  Receipt Date: 20251208
  Transmission Date: 20260117
  Serious: Yes (Hospitalization, Other)
  Sender: AUROBINDO
  Company Number: EU-AFSSAPS-NY2025001809

PATIENT
  Age: 93 Year
  Sex: Female
  Weight: 54.2 kg

DRUGS (8)
  1. MIRTAZAPINE [Suspect]
     Active Substance: MIRTAZAPINE
     Indication: Depression
     Dosage: 45 MILLIGRAM, ONCE A DAY
     Dates: start: 20250823, end: 20251105
  2. METHIMAZOLE [Suspect]
     Active Substance: METHIMAZOLE
     Indication: Hyperthyroidism
     Dosage: 10 MILLIGRAM, ONCE A DAY
     Dates: start: 20250917, end: 20251105
  3. ~MELATONINE ARROW LP 2 mg, comprim? ? lib?ration prolong?e [Concomitant]
     Indication: Sleep disorder
     Dosage: 2 MILLIGRAM, ONCE A DAY
     Dates: start: 20251017
  4. AMLODIPINE [Concomitant]
     Active Substance: AMLODIPINE BESYLATE
     Indication: Hypertension
     Dosage: 5 MILLIGRAM, ONCE A DAY
     Dates: start: 20250812
  5. PROPRANOLOL [Concomitant]
     Active Substance: PROPRANOLOL HYDROCHLORIDE
     Indication: Tachycardia
     Dosage: 20 MILLIGRAM, TWO TIMES A DAY
     Dates: start: 20250819
  6. ~SERESTA 10 mg, comprim? [Concomitant]
     Indication: Anxiety
     Dosage: 10 MILLIGRAM, ONCE A DAY
  7. TARDYFERON 80 mg, comprim? pellicul? [Concomitant]
     Indication: Anaemia
     Dosage: 160 MILLIGRAM, ONCE A DAY (80MG - 80MG - 0)
     Dates: start: 20251015
  8. DOLIPRANE [Concomitant]
     Active Substance: ACETAMINOPHEN
     Indication: Pain
     Dosage: 1 GRAM, 3 TIMES A DAY

REACTIONS (2)
  - Febrile bone marrow aplasia [Recovered/Resolved]
  - Hepatic cytolysis [Recovering/Resolving]

NARRATIVE: CASE EVENT DATE: 20251104
